FAERS Safety Report 13256600 (Version 1)
Quarter: 2017Q1

REPORT INFORMATION
  Report Type: Spontaneous
  Country: US (occurrence: US)
  Receive Date: 20170220
  Receipt Date: 20170220
  Transmission Date: 20170428
  Serious: Yes (Other)
  Sender: FDA-Public Use
  Company Number: None

PATIENT
  Age: 42 Year
  Sex: Female
  Weight: 63 kg

DRUGS (3)
  1. MIRALAX [Suspect]
     Active Substance: POLYETHYLENE GLYCOL 3350
     Indication: CONSTIPATION
     Route: 048
     Dates: start: 20170103, end: 20170214
  2. VITAMIN C [Concomitant]
     Active Substance: ASCORBIC ACID
  3. ADVIL [Concomitant]
     Active Substance: IBUPROFEN

REACTIONS (8)
  - Rash [None]
  - Flushing [None]
  - Headache [None]
  - Drug hypersensitivity [None]
  - Screaming [None]
  - Palpitations [None]
  - Tremor [None]
  - Dizziness [None]

NARRATIVE: CASE EVENT DATE: 20170103
